FAERS Safety Report 6034219-3 (Version None)
Quarter: 2009Q1

REPORT INFORMATION
  Report Type: 
  Country: None (occurrence: None)
  Receive Date: 20090108
  Receipt Date: 20090108
  Transmission Date: 20090719
  Serious: No
  Sender: FDA-Public Use
  Company Number: None

PATIENT
  Age: 62 Year
  Sex: Male
  Weight: 88.9 kg

DRUGS (1)
  1. VARENICLINE [Suspect]
     Indication: SMOKING CESSATION THERAPY
     Dosage: 1 TAB EVERYDAY PO
     Route: 048
     Dates: start: 20081201, end: 20090105

REACTIONS (3)
  - DEPRESSION [None]
  - HEADACHE [None]
  - SOMNOLENCE [None]
